FAERS Safety Report 16649671 (Version 1)
Quarter: 2019Q3

REPORT INFORMATION
  Report Type: Spontaneous
  Country: IT (occurrence: IT)
  Receive Date: 20190730
  Receipt Date: 20190730
  Transmission Date: 20191004
  Serious: No
  Sender: FDA-Public Use
  Company Number: IT-BEH-2019104921

PATIENT
  Age: 48 Year
  Sex: Female
  Weight: 53 kg

DRUGS (10)
  1. TACROLIMUS. [Concomitant]
     Active Substance: TACROLIMUS
     Route: 041
  2. METHYLPREDNISOLONE. [Concomitant]
     Active Substance: METHYLPREDNISOLONE
     Route: 042
  3. BACTRIM [Concomitant]
     Active Substance: SULFAMETHOXAZOLE\TRIMETHOPRIM
     Route: 048
  4. LEVOFLOXACIN. [Concomitant]
     Active Substance: LEVOFLOXACIN
     Route: 041
  5. DEURSIL [Concomitant]
     Active Substance: URSODIOL
     Route: 048
  6. PRIVIGEN [Suspect]
     Active Substance: HUMAN IMMUNOGLOBULIN G
     Indication: HYPOGAMMAGLOBULINAEMIA
     Dosage: 20 GRAM, CYCLICAL
     Route: 040
     Dates: start: 20190717, end: 20190717
  7. CASPOFUNGIN [Concomitant]
     Active Substance: CASPOFUNGIN
     Route: 041
  8. ACICLOVIR [Concomitant]
     Active Substance: ACYCLOVIR
     Route: 042
  9. FOLINA [FOLIC ACID] [Concomitant]
     Active Substance: FOLIC ACID
     Route: 048
  10. BISOPROLOL HEMIFUMARATE [Concomitant]
     Active Substance: BISOPROLOL FUMARATE
     Route: 048

REACTIONS (2)
  - Abdominal pain [Recovered/Resolved]
  - Back pain [Recovered/Resolved]

NARRATIVE: CASE EVENT DATE: 20190717
